FAERS Safety Report 12649184 (Version 1)
Quarter: 2016Q3

REPORT INFORMATION
  Report Type: Spontaneous
  Country: FR (occurrence: FR)
  Receive Date: 20160812
  Receipt Date: 20160812
  Transmission Date: 20161109
  Serious: Yes (Other)
  Sender: FDA-Public Use
  Company Number: FR-PFIZER INC-2016381004

PATIENT
  Age: 58 Year
  Sex: Female

DRUGS (3)
  1. OMEPRAZOLE. [Concomitant]
     Active Substance: OMEPRAZOLE
     Dosage: 40 MG, DAILY (40 MG DAILY IN THE EVENING)
  2. REMICADE [Concomitant]
     Active Substance: INFLIXIMAB
     Indication: RHEUMATOID ARTHRITIS
     Dosage: UNK
  3. IMETH [Suspect]
     Active Substance: METHOTREXATE SODIUM
     Indication: RHEUMATOID ARTHRITIS
     Dosage: 10 MG, WEEKLY (1.4286 MG 10 MG,1 IN 1 W)

REACTIONS (11)
  - Loss of consciousness [Unknown]
  - Fall [Unknown]
  - Upper limb fracture [Unknown]
  - Fatigue [Unknown]
  - Sternal fracture [Unknown]
  - Nausea [Unknown]
  - Pelvic fracture [Unknown]
  - Spinal fracture [Unknown]
  - Malaise [Unknown]
  - Rib fracture [Unknown]
  - Ligament sprain [Unknown]

NARRATIVE: CASE EVENT DATE: 20151220
